FAERS Safety Report 16208812 (Version 1)
Quarter: 2019Q2

REPORT INFORMATION
  Report Type: Spontaneous
  Country: US (occurrence: US)
  Receive Date: 20190417
  Receipt Date: 20190417
  Transmission Date: 20190711
  Serious: No
  Sender: FDA-Public Use
  Company Number: US-TAKEDA-2019TUS021196

PATIENT
  Sex: Female
  Weight: 52.15 kg

DRUGS (2)
  1. SYNTHROID [Concomitant]
     Active Substance: LEVOTHYROXINE SODIUM
     Indication: THYROID DISORDER
     Dosage: UNK UNK, QD
  2. COLCRYS [Suspect]
     Active Substance: COLCHICINE
     Indication: CHONDROCALCINOSIS PYROPHOSPHATE
     Dosage: 0.6 MILLIGRAM, BID
     Route: 065
     Dates: start: 201901, end: 20190405

REACTIONS (2)
  - Abdominal pain upper [Unknown]
  - Extra dose administered [Unknown]
